FAERS Safety Report 5899660-8 (Version None)
Quarter: 2008Q3

REPORT INFORMATION
  Report Type: 
  Country: None (occurrence: None)
  Receive Date: 20080925
  Receipt Date: 20080925
  Transmission Date: 20090109
  Serious: No
  Sender: FDA-Public Use
  Company Number: None

PATIENT
  Age: 58 Year
  Sex: Female

DRUGS (14)
  1. MINOCYCLINE HCL [Suspect]
     Dates: start: 20061127, end: 20080129
  2. ALTACE [Concomitant]
  3. EFFEXOR [Concomitant]
  4. HYDROCODONE BITARTRATE [Concomitant]
  5. OXYCODONE HCL [Concomitant]
  6. PRILOSEC [Concomitant]
  7. ALEVE [Concomitant]
  8. NEXIUM [Concomitant]
  9. LOVENOX [Concomitant]
  10. LIDOCAINE [Concomitant]
  11. PROTONIX [Concomitant]
  12. CEFAZOLIN [Concomitant]
  13. ACETAMINOPHEN [Concomitant]
  14. MIDAZOLAM AND FENTANYL [Concomitant]

REACTIONS (15)
  - ALANINE AMINOTRANSFERASE INCREASED [None]
  - ASPARTATE AMINOTRANSFERASE INCREASED [None]
  - ASTHENIA [None]
  - BLOOD ALKALINE PHOSPHATASE INCREASED [None]
  - BLOOD BILIRUBIN INCREASED [None]
  - BLOOD IMMUNOGLOBULIN G INCREASED [None]
  - CHOLECYSTITIS [None]
  - CHOLELITHIASIS [None]
  - CHROMATURIA [None]
  - DECREASED APPETITE [None]
  - FATIGUE [None]
  - JAUNDICE [None]
  - LIVER INJURY [None]
  - OCULAR ICTERUS [None]
  - SMOOTH MUSCLE ANTIBODY POSITIVE [None]
